FAERS Safety Report 5406098-6 (Version None)
Quarter: 2007Q3

REPORT INFORMATION
  Report Type: 
  Country: None (occurrence: None)
  Receive Date: 20070806
  Receipt Date: 20070725
  Transmission Date: 20080115
  Serious: Yes (Death, Hospitalization, Other)
  Sender: FDA-Public Use
  Company Number: JP-ROCHE-208593

PATIENT
  Age: 47 Year
  Sex: Male

DRUGS (22)
  1. SAQUINAVIR [Suspect]
     Indication: HIV INFECTION
     Route: 048
     Dates: start: 19970515, end: 20050810
  2. NELFINAVIR [Suspect]
     Indication: HIV INFECTION
     Route: 048
     Dates: start: 19980806, end: 20050810
  3. ZALCITABINE [Suspect]
     Indication: HIV INFECTION
     Route: 048
     Dates: start: 19960613, end: 19961114
  4. VOLTAREN [Suspect]
     Dosage: FORM: RECTAL SUPPOSITORY.
     Route: 048
     Dates: start: 19980806, end: 19980907
  5. CRIXIVAN [Suspect]
     Indication: HIV INFECTION
     Route: 048
     Dates: start: 19960725, end: 19970514
  6. EPIVIR [Suspect]
     Indication: HIV INFECTION
     Route: 048
     Dates: start: 19970515, end: 20050810
  7. ZERIT [Suspect]
     Indication: HIV INFECTION
     Route: 048
     Dates: start: 19971101, end: 20050810
  8. BAKTAR [Concomitant]
     Route: 048
     Dates: start: 19930202, end: 19990526
  9. DIFLUCAN [Concomitant]
     Route: 048
     Dates: start: 19971106, end: 19980104
  10. ZOVIRAX [Concomitant]
     Dosage: THREE THERAPIES RECEIVED: 27/FEB/1997-26/MAR/1997, 18/DEC/1997-24/DEC/1997, 23/JAN/2003-28/JAN/2003+
     Route: 048
     Dates: start: 19970227, end: 20030128
  11. ESTAZOLAM [Concomitant]
     Indication: INSOMNIA
     Route: 048
     Dates: start: 19980709, end: 19980723
  12. LOPEMIN [Concomitant]
     Indication: DIARRHOEA
     Route: 048
     Dates: start: 19980924, end: 20060405
  13. RETROVIR [Concomitant]
     Route: 048
     Dates: start: 19970515, end: 19971217
  14. PROTHROMBIN COMPLEX [Concomitant]
     Route: 048
     Dates: start: 20020401
  15. NOVOSEVEN [Concomitant]
     Route: 042
     Dates: start: 20001010, end: 20060509
  16. BUPRENORPHINE HCL [Concomitant]
     Route: 054
     Dates: start: 20020613, end: 20060526
  17. PROPLEX [Concomitant]
     Route: 041
     Dates: start: 19920528, end: 19971031
  18. PENTAGIN [Concomitant]
     Route: 058
     Dates: start: 19980119, end: 19980119
  19. LOXONIN [Concomitant]
     Route: 048
     Dates: start: 19990405, end: 20010412
  20. TRANSAMIN [Concomitant]
     Dosage: RESTARTED ON 01 APRIL 2006 AT THE SAME DOSING REGIMEN.
     Dates: start: 20040412, end: 20060509
  21. FEIBA [Concomitant]
     Dosage: 01 NOV 1998 TOTAL DAILY DOSE INCREASED FROM 6 KIU TO 9 KIU.
     Route: 041
     Dates: start: 19920528, end: 20060509
  22. KOGENATE [Concomitant]
     Dosage: ROUTE: INJECTABLE.
     Route: 050
     Dates: start: 20051028, end: 20051103

REACTIONS (6)
  - GASTROINTESTINAL HAEMORRHAGE [None]
  - HAEMORRHAGE [None]
  - HEPATIC NEOPLASM MALIGNANT [None]
  - HYPOAESTHESIA [None]
  - INJECTION SITE HAEMORRHAGE [None]
  - OSTEONECROSIS [None]
